FAERS Safety Report 6295825-4 (Version None)
Quarter: 2009Q3

REPORT INFORMATION
  Report Type: 
  Country: None (occurrence: None)
  Receive Date: 20090804
  Receipt Date: 20090722
  Transmission Date: 20100115
  Serious: Yes (Death, Hospitalization)
  Sender: FDA-Public Use
  Company Number: JP-PFIZER INC-2009245411

PATIENT
  Age: 83 Year

DRUGS (6)
  1. SOLU-MEDROL [Suspect]
     Dates: start: 20041001
  2. NIFEDIPINE [Concomitant]
     Route: 048
  3. LIPOBUCOL [Concomitant]
     Route: 048
  4. ALFACALCIDOL [Concomitant]
     Route: 048
  5. ALLOPURINOL [Concomitant]
     Route: 048
     Dates: start: 20040917
  6. PREDNISOLONE [Concomitant]
     Route: 048
     Dates: start: 20040101

REACTIONS (4)
  - DECREASED IMMUNE RESPONSIVENESS [None]
  - DISSEMINATED INTRAVASCULAR COAGULATION [None]
  - MULTI-ORGAN FAILURE [None]
  - SEPSIS [None]
